FAERS Safety Report 19052378 (Version 2)
Quarter: 2021Q3

REPORT INFORMATION
  Report Type: Spontaneous
  Country: US (occurrence: US)
  Receive Date: 20210324
  Receipt Date: 20210903
  Transmission Date: 20211014
  Serious: Yes (Other)
  Sender: FDA-Public Use
  Company Number: US-SUN PHARMACEUTICAL INDUSTRIES LTD-2021R1-286991

PATIENT
  Sex: Female
  Weight: 80.74 kg

DRUGS (1)
  1. BACTRIM [Suspect]
     Active Substance: SULFAMETHOXAZOLE\TRIMETHOPRIM
     Indication: URINARY TRACT INFECTION
     Dosage: THIRD TIME (2 INJECTIONS WITH A HYPO)
     Route: 065

REACTIONS (2)
  - Anaphylactic shock [Unknown]
  - Urticaria [Unknown]
